FAERS Safety Report 16520066 (Version 1)
Quarter: 2019Q3

REPORT INFORMATION
  Report Type: Report from Study
  Country: CR (occurrence: CR)
  Receive Date: 20190702
  Receipt Date: 20190702
  Transmission Date: 20191004
  Serious: Yes (Other)
  Sender: FDA-Public Use
  Company Number: PHHY2019CR149321

PATIENT
  Age: 77 Year
  Sex: Male

DRUGS (1)
  1. EXFORGE HCT [Suspect]
     Active Substance: AMLODIPINE BESYLATE\HYDROCHLOROTHIAZIDE\VALSARTAN
     Indication: PRODUCT USED FOR UNKNOWN INDICATION
     Dosage: 1 DF, (5 MG AMLODIPINE, 12.5 MG HYDROCHLOROTHIAZIDE, 160 MG VALSARTAN)
     Route: 065
     Dates: start: 20190601

REACTIONS (1)
  - Diabetes mellitus [Unknown]
